FAERS Safety Report 8880661 (Version 2)
Quarter: 2012Q4

REPORT INFORMATION
  Report Type: 
  Country: ES (occurrence: ES)
  Receive Date: 20121101
  Receipt Date: 20121115
  Transmission Date: 20130627
  Serious: Yes (Death)
  Sender: FDA-Public Use
  Company Number: ES-GENZYME-THYM-1003467

PATIENT
  Age: 51 Year
  Sex: Male
  Weight: 68 kg

DRUGS (5)
  1. THYMOGLOBULINE [Suspect]
     Indication: BONE MARROW CONDITIONING REGIMEN
     Dosage: 2 mg/kg, qd
     Route: 042
     Dates: start: 20111112, end: 20111115
  2. BUSULFAN [Concomitant]
     Indication: BONE MARROW CONDITIONING REGIMEN
     Dosage: UNK
     Route: 065
  3. CYCLOSPORIN A [Concomitant]
     Indication: PROPHYLAXIS AGAINST TRANSPLANT REJECTION
     Dosage: UNK
     Route: 065
  4. THIOTEPA [Concomitant]
     Indication: BONE MARROW CONDITIONING REGIMEN
     Dosage: UNK
     Route: 065
  5. GENOXAL [Concomitant]
     Indication: BONE MARROW CONDITIONING REGIMEN
     Dosage: UNK, (1x20 ml)
     Route: 065

REACTIONS (1)
  - Post transplant lymphoproliferative disorder [Fatal]
